FAERS Safety Report 5603493-7 (Version None)
Quarter: 2008Q1

REPORT INFORMATION
  Report Type: 
  Country: None (occurrence: None)
  Receive Date: 20080122
  Receipt Date: 20080108
  Transmission Date: 20080703
  Serious: Yes (Hospitalization, Other)
  Sender: FDA-Public Use
  Company Number: 2007BI018346

PATIENT
  Age: 57 Year
  Sex: Female
  Weight: 68.0396 kg

DRUGS (7)
  1. TYSABRI [Suspect]
     Indication: MULTIPLE SCLEROSIS
     Dosage: 300 MG; QM; IV
     Route: 042
     Dates: start: 20070730, end: 20070827
  2. COREG [Concomitant]
  3. STEROIDAL EYE DROPS [Concomitant]
  4. IRON [Concomitant]
  5. ASPIRIN [Concomitant]
  6. LIPITOR [Concomitant]
  7. CAPTOPRIL [Concomitant]

REACTIONS (4)
  - ANAPHYLACTIC REACTION [None]
  - CARDIAC FAILURE CONGESTIVE [None]
  - CONVULSION [None]
  - DRUG HYPERSENSITIVITY [None]
